FAERS Safety Report 15025162 (Version 2)
Quarter: 2018Q2

REPORT INFORMATION
  Report Type: Spontaneous
  Country: SE (occurrence: SE)
  Receive Date: 20180618
  Receipt Date: 20180628
  Transmission Date: 20180711
  Serious: Yes (Other)
  Sender: FDA-Public Use
  Company Number: SE-GEHC-2018CSU002352

PATIENT

DRUGS (1)
  1. OMNIPAQUE [Suspect]
     Active Substance: IOHEXOL
     Indication: HAEMATURIA
     Dosage: 48 UNK, SINGLE
     Route: 042
     Dates: start: 20180307, end: 20180307

REACTIONS (2)
  - Dyspnoea [Recovered/Resolved]
  - Sneezing [Recovered/Resolved]

NARRATIVE: CASE EVENT DATE: 20180307
